FAERS Safety Report 9947463 (Version 1)
Quarter: 2014Q1

REPORT INFORMATION
  Report Type: Report from Study
  Country: US (occurrence: US)
  Receive Date: 20140303
  Receipt Date: 20140303
  Transmission Date: 20141002
  Serious: No
  Sender: FDA-Public Use
  Company Number: US-ABBVIE-13P-163-1061808-00

PATIENT
  Age: 48 Year
  Sex: Female

DRUGS (22)
  1. HUMIRA [Suspect]
     Indication: CROHN^S DISEASE
     Dates: start: 20130202, end: 20130202
  2. HUMIRA [Suspect]
     Dates: start: 20130216, end: 20130216
  3. HUMIRA [Suspect]
     Dates: start: 20130302
  4. RESTASIS [Concomitant]
     Indication: DRY EYE
     Dosage: ONE DROP IN EACH EYE, TWICE DAILY
  5. PENTASA [Concomitant]
     Indication: CROHN^S DISEASE
     Dosage: 4 PILLS, TWICE A DAY
  6. ENTOCORT [Concomitant]
     Indication: CROHN^S DISEASE
  7. DEXILANT [Concomitant]
     Indication: DYSPEPSIA
  8. CYMBALTA [Concomitant]
     Indication: PAIN
     Dosage: DAILY
  9. FLEXERIL [Concomitant]
     Indication: INTERVERTEBRAL DISC DEGENERATION
  10. FLEXERIL [Concomitant]
     Indication: MUSCLE SPASMS
  11. TRAZODONE [Concomitant]
     Indication: INSOMNIA
     Dosage: 2 TABS AT BEDTIME
  12. FISH OIL [Concomitant]
     Indication: PRODUCT USED FOR UNKNOWN INDICATION
     Dosage: 2 TABS DAILY
  13. CENTRUM SILVER [Concomitant]
     Indication: PRODUCT USED FOR UNKNOWN INDICATION
  14. VITAMIN C [Concomitant]
     Indication: PRODUCT USED FOR UNKNOWN INDICATION
  15. STOOL SOFTENER [Concomitant]
     Indication: CONSTIPATION
     Dosage: DAILY
  16. HYDROCODONE [Concomitant]
     Indication: PAIN
     Dosage: TAKES VERY RARELY
  17. LINACLOTIDE [Concomitant]
     Indication: IRRITABLE BOWEL SYNDROME
     Dosage: DAILY
  18. LINACLOTIDE [Concomitant]
     Indication: CROHN^S DISEASE
  19. POTASSIUM [Concomitant]
     Indication: BLOOD POTASSIUM DECREASED
     Dosage: DAILY
  20. RANITIDINE [Concomitant]
     Indication: DYSPEPSIA
  21. LOPRIN [Concomitant]
     Indication: HEPATIC STEATOSIS
     Dosage: DAILY
  22. ZANAFLEX [Concomitant]
     Indication: MUSCLE SPASMS
     Dosage: 2 TABS DAILY

REACTIONS (3)
  - Oropharyngeal pain [Not Recovered/Not Resolved]
  - Nasopharyngitis [Not Recovered/Not Resolved]
  - Dry eye [Unknown]
